FAERS Safety Report 6792196-1 (Version None)
Quarter: 2010Q2

REPORT INFORMATION
  Report Type: 
  Country: None (occurrence: None)
  Receive Date: 20100624
  Receipt Date: 20090713
  Transmission Date: 20101027
  Serious: Yes (Other)
  Sender: FDA-Public Use
  Company Number: US-PFIZER INC-2008059861

PATIENT
  Sex: Female
  Weight: 72 kg

DRUGS (6)
  1. PROVERA [Suspect]
     Indication: HORMONE REPLACEMENT THERAPY
     Dosage: UNK
     Route: 048
     Dates: start: 19911101, end: 20020401
  2. PREMARIN [Suspect]
     Indication: HORMONE REPLACEMENT THERAPY
     Dosage: UNK
     Dates: start: 19911101, end: 20020401
  3. PREMPRO [Suspect]
     Indication: HORMONE REPLACEMENT THERAPY
  4. BUMEX [Concomitant]
     Indication: BLOOD PRESSURE
     Dosage: UNK
     Dates: start: 19840101
  5. SYNTHROID [Suspect]
     Indication: DIABETES MELLITUS
     Dosage: UNK
     Dates: start: 20000101
  6. VYTORIN [Concomitant]
     Indication: BLOOD CHOLESTEROL
     Dosage: UNK
     Dates: start: 19970101

REACTIONS (1)
  - BREAST CANCER FEMALE [None]
